FAERS Safety Report 13586114 (Version 1)
Quarter: 2017Q2

REPORT INFORMATION
  Report Type: Spontaneous
  Country: FR (occurrence: FR)
  Receive Date: 20170526
  Receipt Date: 20170526
  Transmission Date: 20170830
  Serious: Yes (Congenital Anomaly)
  Sender: FDA-Public Use
  Company Number: FR-LUNDBECK-DKLU2031864

PATIENT
  Age: 0 Day
  Sex: Female

DRUGS (7)
  1. TEGRETOL [Suspect]
     Active Substance: CARBAMAZEPINE
     Indication: PRODUCT USED FOR UNKNOWN INDICATION
     Route: 064
  2. LAMICTAL [Suspect]
     Active Substance: LAMOTRIGINE
     Indication: PRODUCT USED FOR UNKNOWN INDICATION
     Route: 064
     Dates: start: 20140320
  3. LAMICTAL [Suspect]
     Active Substance: LAMOTRIGINE
     Route: 064
     Dates: end: 20140807
  4. URBANYL [Suspect]
     Active Substance: CLOBAZAM
     Indication: PRODUCT USED FOR UNKNOWN INDICATION
     Route: 064
     Dates: end: 201403
  5. TEGRETOL [Suspect]
     Active Substance: CARBAMAZEPINE
     Route: 064
     Dates: start: 20140320, end: 20140807
  6. GARDENAL [Suspect]
     Active Substance: PHENOBARBITAL
     Indication: PRODUCT USED FOR UNKNOWN INDICATION
     Route: 064
     Dates: start: 20140319, end: 20140807
  7. RIVOTRIL [Suspect]
     Active Substance: CLONAZEPAM
     Indication: PRODUCT USED FOR UNKNOWN INDICATION
     Route: 064
     Dates: start: 201403, end: 20140807

REACTIONS (5)
  - Tremor [Recovered/Resolved]
  - Premature baby [Recovered/Resolved]
  - Foetal exposure during pregnancy [Recovered/Resolved]
  - Congenital megaureter [Not Recovered/Not Resolved]
  - Exposure during pregnancy [Recovered/Resolved]

NARRATIVE: CASE EVENT DATE: 20140807
